FAERS Safety Report 12596222 (Version 1)
Quarter: 2016Q3

REPORT INFORMATION
  Report Type: Other
  Country: None (occurrence: US)
  Receive Date: 20160726
  Receipt Date: 20160726
  Transmission Date: 20161109
  Serious: Yes (Other)
  Sender: FDA-Public Use
  Company Number: US-GUTHY-RENKER LLC-1055573

PATIENT
  Age: 44 Year
  Sex: Female

DRUGS (2)
  1. LORAZEPAM, CITALOPRAM, AND UNDISCLOSED MEDICATIONS FOR CROHN^S DISEASE [Concomitant]
  2. IT COSMETICS BYE BYE FOUNDATION SPF 50+ [Suspect]
     Active Substance: TITANIUM DIOXIDE\ZINC OXIDE
     Indication: PHOTOSENSITIVITY REACTION
     Route: 061
     Dates: start: 20160417

REACTIONS (5)
  - Swelling face [None]
  - Dyspnoea [None]
  - Eye swelling [None]
  - Angioedema [Recovered/Resolved]
  - Application site erythema [None]

NARRATIVE: CASE EVENT DATE: 20160417
